FAERS Safety Report 7554552-3 (Version None)
Quarter: 2011Q2

REPORT INFORMATION
  Report Type: 
  Country: None (occurrence: None)
  Receive Date: 20110614
  Receipt Date: 20110614
  Transmission Date: 20111010
  Serious: Yes (Other)
  Sender: FDA-Public Use
  Company Number: None

PATIENT
  Sex: Female
  Weight: 66.2252 kg

DRUGS (2)
  1. OXALIPLATIN [Suspect]
     Indication: COLON CANCER
     Dosage: 115MG/Q2W/IVSG
     Dates: start: 20110103, end: 20110601
  2. OXALIPLATIN [Suspect]

REACTIONS (3)
  - CHILLS [None]
  - TREMOR [None]
  - BACK PAIN [None]
